FAERS Safety Report 8097919-X (Version None)
Quarter: 2012Q1

REPORT INFORMATION
  Report Type: 
  Country: None (occurrence: None)
  Receive Date: 20120128
  Receipt Date: 20110721
  Transmission Date: 20120608
  Serious: No
  Sender: FDA-Public Use
  Company Number: US-ABBOTT-11P-163-0840878-00

PATIENT
  Age: 59 Year
  Sex: Male

DRUGS (7)
  1. CALCIUM [Concomitant]
     Indication: MINERAL SUPPLEMENTATION
     Dosage: DAILY
  2. HUMIRA [Suspect]
     Indication: CROHN'S DISEASE
     Dates: start: 20110301
  3. COD LIVER OIL [Concomitant]
     Indication: PRODUCT USED FOR UNKNOWN INDICATION
     Dosage: ONE DAILY
  4. CHONDROITIN [Concomitant]
     Indication: PRODUCT USED FOR UNKNOWN INDICATION
     Dosage: MSG ONE DAILY
  5. FOLIC ACID [Concomitant]
     Indication: PRODUCT USED FOR UNKNOWN INDICATION
  6. MULTI-VITAMINS [Concomitant]
     Indication: PRODUCT USED FOR UNKNOWN INDICATION
     Dosage: ONE DAILY
  7. PREVACID [Concomitant]
     Indication: PRODUCT USED FOR UNKNOWN INDICATION

REACTIONS (1)
  - HYPERAESTHESIA [None]
